FAERS Safety Report 6725367-0 (Version None)
Quarter: 2010Q2

REPORT INFORMATION
  Report Type: 
  Country: None (occurrence: None)
  Receive Date: 20100513
  Receipt Date: 20100513
  Transmission Date: 20101027
  Serious: Yes (Hospitalization)
  Sender: FDA-Public Use
  Company Number: None

PATIENT
  Age: 75 Year
  Sex: Female
  Weight: 61.2356 kg

DRUGS (2)
  1. BONIVA [Suspect]
     Indication: OSTEOPOROSIS
     Dosage: 150 MG MONTHLY ; 7-8 YR
  2. FOSAMAX [Suspect]
     Dosage: 9-10 YR

REACTIONS (2)
  - FEMUR FRACTURE [None]
  - MUSCULAR WEAKNESS [None]
